FAERS Safety Report 24026447 (Version 1)
Quarter: 2024Q2

REPORT INFORMATION
  Report Type: Spontaneous
  Country: US (occurrence: US)
  Receive Date: 20240628
  Receipt Date: 20240628
  Transmission Date: 20240716
  Serious: Yes (Other)
  Sender: FDA-Public Use
  Company Number: US-AUROBINDO-AUR-APL-2024-031078

PATIENT
  Age: 28 Year
  Sex: Female

DRUGS (5)
  1. MONTELUKAST [Suspect]
     Active Substance: MONTELUKAST SODIUM
     Indication: Anaphylactic reaction
     Dosage: UNK
     Route: 065
  2. PREDNISONE [Suspect]
     Active Substance: PREDNISONE
     Indication: Anaphylactic reaction
     Dosage: UNK
     Route: 065
  3. OMALIZUMAB [Suspect]
     Active Substance: OMALIZUMAB
     Indication: Anaphylactic reaction
     Dosage: 300 MILLIGRAM, MONTHLY
     Route: 058
     Dates: start: 202008
  4. OMALIZUMAB [Suspect]
     Active Substance: OMALIZUMAB
     Dosage: 300 MILLIGRAM, EVERY 3 WEEKS
     Route: 058
  5. EPIPEN [Concomitant]
     Active Substance: EPINEPHRINE
     Indication: Anaphylactic reaction
     Dosage: SELF-ADMINISTERED ON AT LEAST 5 OCCASIONS OVER THE LAST 3 MONTHS
     Route: 065

REACTIONS (1)
  - Drug ineffective [Unknown]
